FAERS Safety Report 14220970 (Version 2)
Quarter: 2017Q4

REPORT INFORMATION
  Report Type: Spontaneous
  Country: GB (occurrence: GB)
  Receive Date: 20171123
  Receipt Date: 20171204
  Transmission Date: 20180321
  Serious: Yes (Other)
  Sender: FDA-Public Use
  Company Number: GB-SA-2017SA224423

PATIENT
  Sex: Male

DRUGS (1)
  1. MABCAMPATH [Suspect]
     Active Substance: ALEMTUZUMAB
     Indication: BONE MARROW CONDITIONING REGIMEN
     Route: 065

REACTIONS (3)
  - Bradycardia [Unknown]
  - Hypothermia [Unknown]
  - Off label use [Unknown]
